FAERS Safety Report 4710876-6 (Version None)
Quarter: 2005Q3

REPORT INFORMATION
  Report Type: 
  Country: None (occurrence: None)
  Receive Date: 20050711
  Receipt Date: 20050702
  Transmission Date: 20060218
  Serious: Yes (Death, Hospitalization)
  Sender: FDA-Public Use
  Company Number: GB-GLAXOSMITHKLINE-B0386619A

PATIENT
  Age: 35 Year
  Sex: Female

DRUGS (14)
  1. TRIZIVIR [Suspect]
     Indication: HIV INFECTION
     Route: 048
     Dates: start: 20050324, end: 20050329
  2. DAPSONE [Concomitant]
     Dosage: 50MG PER DAY
     Route: 048
  3. ITRACONAZOLE [Concomitant]
     Indication: FUNGAL INFECTION
     Dosage: 200MG PER DAY
     Route: 048
  4. SALBUTAMOL [Concomitant]
     Indication: ASTHMA
     Dosage: 8PUFF PER DAY
  5. BECOTIDE [Concomitant]
     Indication: ASTHMA
     Dosage: 400MCG PER DAY
  6. MEGESTROL [Concomitant]
     Indication: DECREASED APPETITE
     Dosage: 320MG PER DAY
     Route: 048
  7. ASPIRIN [Concomitant]
     Dosage: 75MG PER DAY
     Route: 048
     Dates: start: 20050331
  8. VALACYCLOVIR HCL [Concomitant]
     Indication: VAGOTOMY
     Dosage: 3G PER DAY
     Route: 048
     Dates: start: 20050331
  9. METRONIDAZOLE [Concomitant]
     Dosage: 10MG THREE TIMES PER DAY
     Route: 065
  10. CYCLIZINE [Concomitant]
     Dosage: 50MG THREE TIMES PER DAY
     Route: 065
  11. IBUPROFEN [Concomitant]
     Dosage: 400MG THREE TIMES PER DAY
     Route: 065
  12. ACETAMINOPHEN [Concomitant]
     Dosage: 1G FOUR TIMES PER DAY
     Route: 065
  13. SEPTRIN [Concomitant]
  14. ABACAVIR [Concomitant]

REACTIONS (2)
  - FACE OEDEMA [None]
  - RASH [None]
